FAERS Safety Report 12839588 (Version 1)
Quarter: 2016Q4

REPORT INFORMATION
  Report Type: Spontaneous
  Country: US (occurrence: US)
  Receive Date: 20161011
  Receipt Date: 20161011
  Transmission Date: 20170207
  Serious: Yes (Life-Threatening, Hospitalization)
  Sender: FDA-Public Use
  Company Number: None

PATIENT
  Age: 56 Year
  Sex: Female
  Weight: 73.8 kg

DRUGS (13)
  1. EDARBYCLOR [Suspect]
     Active Substance: AZILSARTAN KAMEDOXOMIL\CHLORTHALIDONE
     Indication: BLOOD PRESSURE MEASUREMENT
     Route: 048
     Dates: start: 20160807, end: 20160820
  2. PROGESTERONE. [Concomitant]
     Active Substance: PROGESTERONE
  3. SIMVASTATIN. [Concomitant]
     Active Substance: SIMVASTATIN
  4. PSYLLIUM FIBER KONSYL 1 TEASPOON [Concomitant]
     Active Substance: PSYLLIUM HUSK
  5. PROGESTERONE. [Concomitant]
     Active Substance: PROGESTERONE
  6. BABY ASPIRIN [Concomitant]
     Active Substance: ASPIRIN
  7. ESTROGEN [Concomitant]
     Active Substance: ESTRONE\SUS SCROFA OVARY
  8. OMEGA 3 [Concomitant]
     Active Substance: OMEGA-3 FATTY ACIDS
  9. COQ10 [Concomitant]
     Active Substance: UBIDECARENONE
  10. MULTI VITAMIN [Concomitant]
     Active Substance: VITAMINS
  11. SYNTHROID [Concomitant]
     Active Substance: LEVOTHYROXINE SODIUM
  12. PROTONIX [Concomitant]
     Active Substance: PANTOPRAZOLE SODIUM
  13. FENOFIBTRATE [Concomitant]

REACTIONS (11)
  - Pain [None]
  - Gastritis [None]
  - Musculoskeletal discomfort [None]
  - Nausea [None]
  - Abdominal discomfort [None]
  - Abdominal pain upper [None]
  - Diverticulitis [None]
  - Hyperhidrosis [None]
  - Vomiting [None]
  - Pancreatitis acute [None]
  - Oesophagitis [None]

NARRATIVE: CASE EVENT DATE: 20160820
